FAERS Safety Report 5132334-X (Version None)
Quarter: 2006Q4

REPORT INFORMATION
  Report Type: 
  Country: None (occurrence: None)
  Receive Date: 20061019
  Receipt Date: 20061019
  Transmission Date: 20070319
  Serious: Yes (Life-Threatening)
  Sender: FDA-Public Use
  Company Number: None

PATIENT
  Age: 74 Year
  Sex: Male
  Weight: 49.8957 kg

DRUGS (1)
  1. METFORMIN HCL [Suspect]
     Indication: DIABETES MELLITUS NON-INSULIN-DEPENDENT
     Dosage: 500 MG BID PO
     Route: 048
     Dates: start: 20060411

REACTIONS (3)
  - ILEOSTOMY [None]
  - LACTIC ACIDOSIS [None]
  - RENAL FAILURE ACUTE [None]
